FAERS Safety Report 24430229 (Version 1)
Quarter: 2024Q4

REPORT INFORMATION
  Report Type: Spontaneous
  Country: US (occurrence: US)
  Receive Date: 20241013
  Receipt Date: 20241013
  Transmission Date: 20250114
  Serious: Yes (Hospitalization, Other)
  Sender: DR REDDYS
  Company Number: US-DRL-USA-LIT/USA/24/0014799

PATIENT
  Age: 69 Year
  Sex: Male

DRUGS (3)
  1. LEVOFLOXACIN [Suspect]
     Active Substance: LEVOFLOXACIN
     Indication: Pneumonia
  2. DAPTOMYCIN [Suspect]
     Active Substance: DAPTOMYCIN
     Indication: Arthritis bacterial
  3. RIFAMPIN [Concomitant]
     Active Substance: RIFAMPIN
     Indication: Arthritis bacterial

REACTIONS (4)
  - Eosinophilic pneumonia acute [Recovering/Resolving]
  - Acute respiratory failure [Recovering/Resolving]
  - Condition aggravated [Unknown]
  - Product use in unapproved indication [Unknown]
